FAERS Safety Report 9966244 (Version 1)
Quarter: 2014Q1

REPORT INFORMATION
  Report Type: Report from Study
  Country: US (occurrence: US)
  Receive Date: 20140305
  Receipt Date: 20140305
  Transmission Date: 20141002
  Serious: No
  Sender: FDA-Public Use
  Company Number: US-ABBVIE-13P-163-1122973-00

PATIENT
  Sex: Female

DRUGS (2)
  1. HUMIRA [Suspect]
     Indication: RHEUMATOID ARTHRITIS
  2. METHOTREXATE [Concomitant]
     Indication: PRODUCT USED FOR UNKNOWN INDICATION

REACTIONS (5)
  - Increased upper airway secretion [Recovered/Resolved]
  - Respiratory tract congestion [Recovered/Resolved]
  - Nausea [Recovered/Resolved]
  - VIIth nerve paralysis [Recovered/Resolved]
  - Mouth injury [Recovered/Resolved]
